FAERS Safety Report 24563407 (Version 1)
Quarter: 2024Q4

REPORT INFORMATION
  Report Type: Spontaneous
  Country: GB (occurrence: GB)
  Receive Date: 20241030
  Receipt Date: 20241030
  Transmission Date: 20250114
  Serious: Yes (Hospitalization)
  Sender: ROCHE
  Company Number: None

PATIENT
  Age: 65 Year
  Sex: Female

DRUGS (1)
  1. PHESGO [Suspect]
     Active Substance: HYALURONIDASE-ZZXF\PERTUZUMAB\TRASTUZUMAB
     Indication: Product used for unknown indication
     Dosage: 600 MG, 1 PER 3 WEEKS (START DATE: AUG-2023)
     Route: 065

REACTIONS (3)
  - Nausea [Unknown]
  - Blood potassium decreased [Unknown]
  - Malaise [Unknown]
